FAERS Safety Report 4630556-5 (Version None)
Quarter: 2005Q2

REPORT INFORMATION
  Report Type: 
  Country: None (occurrence: None)
  Receive Date: 20050405
  Receipt Date: 20050405
  Transmission Date: 20051028
  Serious: Yes (Hospitalization)
  Sender: FDA-Public Use
  Company Number: None

PATIENT
  Age: 48 Year
  Sex: Female
  Weight: 61 kg

DRUGS (8)
  1. IRINOTECAN HCL [Suspect]
     Indication: PANCREATIC CARCINOMA
     Dosage: 50 MG/M2
     Dates: start: 20041117
  2. DOCETAXEL [Suspect]
     Dosage: 35 MG/M2
     Dates: start: 20041124, end: 20041201
  3. ENOXAPARIN SODIUM [Concomitant]
  4. DECADRON [Concomitant]
  5. ATENOLOL [Concomitant]
  6. KLONOPIN [Concomitant]
  7. OXYCODONE HCL [Concomitant]
  8. ATIVAN [Concomitant]

REACTIONS (4)
  - DECREASED APPETITE [None]
  - DIARRHOEA [None]
  - VOMITING [None]
  - WEIGHT DECREASED [None]
